FAERS Safety Report 18085817 (Version 1)
Quarter: 2020Q3

REPORT INFORMATION
  Report Type: Spontaneous
  Country: US (occurrence: US)
  Receive Date: 20200728
  Receipt Date: 20200728
  Transmission Date: 20201103
  Serious: Yes (Other)
  Sender: FDA-Public Use
  Company Number: None

PATIENT
  Age: 57 Year
  Sex: Female

DRUGS (12)
  1. EFFEXOR [Concomitant]
     Active Substance: VENLAFAXINE HYDROCHLORIDE
  2. TOPROL XL [Concomitant]
     Active Substance: METOPROLOL SUCCINATE
  3. OYSTER SHELL CALCIUM + VI [Concomitant]
  4. GABAPENTIN. [Concomitant]
     Active Substance: GABAPENTIN
  5. VITAMIN E [Concomitant]
     Active Substance: .ALPHA.-TOCOPHEROL
  6. CHANTIX [Concomitant]
     Active Substance: VARENICLINE TARTRATE
  7. IBRANCE [Suspect]
     Active Substance: PALBOCICLIB
     Indication: NEOPLASM MALIGNANT
     Route: 048
  8. COLLACE [Concomitant]
  9. DOCUSATE SODIUM. [Concomitant]
     Active Substance: DOCUSATE SODIUM
  10. NICOTINE. [Concomitant]
     Active Substance: NICOTINE
  11. LETROZOLE. [Concomitant]
     Active Substance: LETROZOLE
  12. ELIQUIS [Concomitant]
     Active Substance: APIXABAN

REACTIONS (3)
  - Musculoskeletal chest pain [None]
  - Cardiac arrest [None]
  - Back pain [None]

NARRATIVE: CASE EVENT DATE: 20200717
